FAERS Safety Report 9472521 (Version 1)
Quarter: 2013Q3

REPORT INFORMATION
  Report Type: Spontaneous
  Country: US (occurrence: US)
  Receive Date: 20130823
  Receipt Date: 20130823
  Transmission Date: 20140515
  Serious: Yes (Other)
  Sender: FDA-Public Use
  Company Number: US-PFIZER INC-2013243465

PATIENT
  Age: 64 Year
  Sex: Male
  Weight: 86.17 kg

DRUGS (6)
  1. NEURONTIN [Suspect]
     Indication: NEURALGIA
     Dosage: 100 MG, UNK
  2. NEURONTIN [Suspect]
     Indication: SPINAL COLUMN STENOSIS
     Dosage: 300 MG, 3X/DAY
  3. NEURONTIN [Suspect]
     Indication: PAIN
     Dosage: 100 MG, 1X/DAY
     Dates: start: 201307, end: 2013
  4. NEURONTIN [Suspect]
     Dosage: 100 MG, 2X/DAY
     Dates: start: 2013, end: 20130818
  5. NEURONTIN [Suspect]
     Dosage: 100 MG, 3X/DAY
     Dates: start: 20130819
  6. DICLOFENAC SODIUM [Concomitant]
     Indication: ARTHRITIS
     Dosage: 75 MG, DAILY

REACTIONS (3)
  - Spinal disorder [Unknown]
  - Pain [Unknown]
  - Neuralgia [Unknown]
